FAERS Safety Report 5619982-5 (Version None)
Quarter: 2008Q1

REPORT INFORMATION
  Report Type: 
  Country: None (occurrence: None)
  Receive Date: 20080208
  Receipt Date: 20080131
  Transmission Date: 20080703
  Serious: Yes (Death, Hospitalization)
  Sender: FDA-Public Use
  Company Number: KR-ROCHE-541058

PATIENT
  Age: 65 Year
  Sex: Male
  Weight: 50.5 kg

DRUGS (5)
  1. CAPECITABINE [Suspect]
     Indication: GASTRIC CANCER
     Dosage: AS PER PROTOCOL: 1000 MG/M2 BID FOR 14 DAYS EVERY 3 WEEKS (FROM PM OF DAY 1 TO AM OF DAY 15)
     Route: 048
     Dates: start: 20071214, end: 20071229
  2. TRASTUZUMAB [Suspect]
     Indication: GASTRIC CANCER
     Dosage: AS PER PROTOCOL: LOADING DOSE (8MG/KG INFUSION) ON DAY 1 MAINTENANCE DOSE (6 MG/KG INFUSION), 1 PER+
     Route: 042
     Dates: start: 20071214, end: 20071214
  3. CISPLATIN [Suspect]
     Indication: GASTRIC CANCER
     Dosage: DOSAGE FORM: INFUSION.
     Route: 042
     Dates: start: 20071214, end: 20071214
  4. DOXIFLURIDINE [Concomitant]
     Dates: start: 20070201, end: 20070502
  5. MITOMYCIN [Concomitant]
     Dates: start: 20061220, end: 20061220

REACTIONS (9)
  - BLOOD CULTURE POSITIVE [None]
  - DEPRESSED LEVEL OF CONSCIOUSNESS [None]
  - ESCHERICHIA INFECTION [None]
  - HYPOXIA [None]
  - PANCYTOPENIA [None]
  - PNEUMONIA [None]
  - PSEUDOMONAS INFECTION [None]
  - RENAL FAILURE [None]
  - RESPIRATORY DISTRESS [None]
